FAERS Safety Report 5220658-7 (Version None)
Quarter: 2007Q1

REPORT INFORMATION
  Report Type: 
  Country: None (occurrence: None)
  Receive Date: 20070126
  Receipt Date: 20070118
  Transmission Date: 20070707
  Serious: Yes (Hospitalization)
  Sender: FDA-Public Use
  Company Number: 2007UW01313

PATIENT
  Age: 35 Year
  Sex: Female

DRUGS (3)
  1. SEROQUEL [Suspect]
     Route: 048
     Dates: start: 20061026
  2. SEROQUEL [Suspect]
     Route: 048
     Dates: start: 20061208
  3. SEROQUEL [Suspect]
     Route: 048
     Dates: start: 20070101

REACTIONS (6)
  - ABDOMINAL PAIN [None]
  - CHOKING SENSATION [None]
  - HEADACHE [None]
  - LETHARGY [None]
  - NAUSEA [None]
  - VOMITING [None]
